FAERS Safety Report 21303805 (Version 1)
Quarter: 2022Q3

REPORT INFORMATION
  Report Type: Other
  Country: US (occurrence: US)
  Receive Date: 20220907
  Receipt Date: 20220907
  Transmission Date: 20221026
  Serious: No
  Sender: FDA-Public Use
  Company Number: US-LEADIANT BIOSCIENCES, INC.-2021STPI000241

PATIENT
  Sex: Male

DRUGS (1)
  1. MATULANE [Suspect]
     Active Substance: PROCARBAZINE HYDROCHLORIDE
     Indication: Hodgkin^s disease
     Dosage: 150 MILLIGRAM, DAILY, ON DAYS 1-14 OF A 28 DAY CYCLE
     Route: 048
     Dates: start: 20210527

REACTIONS (2)
  - Fatigue [Unknown]
  - Illness [Unknown]
